FAERS Safety Report 25638280 (Version 1)
Quarter: 2025Q3

REPORT INFORMATION
  Report Type: Spontaneous
  Country: US (occurrence: US)
  Receive Date: 20250804
  Receipt Date: 20250804
  Transmission Date: 20251021
  Serious: Yes (Hospitalization)
  Sender: LUNDBECK
  Company Number: US-LUNDBECK-DKLU4017640

PATIENT
  Age: 26 Year
  Sex: Female

DRUGS (5)
  1. CLOBAZAM [Suspect]
     Active Substance: CLOBAZAM
     Indication: Seizure
     Dosage: FOR 2 WEEKS
     Dates: start: 2023
  2. CLOBAZAM [Suspect]
     Active Substance: CLOBAZAM
     Dosage: FOR 2 WEEKS
     Dates: start: 2023
  3. CLOBAZAM [Suspect]
     Active Substance: CLOBAZAM
     Dosage: FOR 2 WEEKS
     Dates: start: 2023, end: 202309
  4. CENOBAMATE [Suspect]
     Active Substance: CENOBAMATE
     Indication: Seizure
     Dosage: 200 MILLIGRAM
     Dates: start: 2023, end: 202310
  5. LAMOTRIGINE [Concomitant]
     Active Substance: LAMOTRIGINE
     Indication: Seizure
     Dosage: 700 MILLIGRAM

REACTIONS (3)
  - Somnolence [Recovered/Resolved]
  - Drug metabolite level high [Recovered/Resolved]
  - Drug interaction [Recovered/Resolved]

NARRATIVE: CASE EVENT DATE: 20230101
